FAERS Safety Report 9263119 (Version 1)
Quarter: 2013Q2

REPORT INFORMATION
  Report Type: Spontaneous
  Country: US (occurrence: None)
  Receive Date: 20130426
  Receipt Date: 20130426
  Transmission Date: 20140414
  Serious: Yes (Hospitalization)
  Sender: FDA-Public Use
  Company Number: None

PATIENT
  Age: 58 Year
  Sex: Female
  Weight: 99.09 kg

DRUGS (10)
  1. PROMACTA [Suspect]
     Indication: THROMBOCYTOPENIA
     Route: 048
     Dates: start: 20130418, end: 20130421
  2. PEGASYS [Concomitant]
  3. RIBAVIRIN [Concomitant]
  4. INCIVEK [Concomitant]
  5. MIRTAZAPINE [Concomitant]
  6. NADOLOL [Concomitant]
  7. FLUOXETINE [Concomitant]
  8. AMLODIPINE [Concomitant]
  9. LOSARTAN [Concomitant]
  10. HYDROCHLOROTHIAZIDE [Concomitant]

REACTIONS (6)
  - Jaundice [None]
  - Fatigue [None]
  - Nausea [None]
  - Liver function test abnormal [None]
  - Blood creatinine increased [None]
  - Blood urea increased [None]
